FAERS Safety Report 6850345-0 (Version None)
Quarter: 2010Q3

REPORT INFORMATION
  Report Type: 
  Country: None (occurrence: None)
  Receive Date: 20100716
  Receipt Date: 20100707
  Transmission Date: 20110219
  Serious: Yes (Hospitalization, Other)
  Sender: FDA-Public Use
  Company Number: US-ABBOTT-10P-163-0653153-00

PATIENT
  Sex: Female
  Weight: 103.97 kg

DRUGS (10)
  1. NIASPAN [Suspect]
     Indication: HIGH DENSITY LIPOPROTEIN DECREASED
     Dosage: QHS
     Route: 048
     Dates: start: 20080101
  2. MORPHINE [Suspect]
     Indication: PROCEDURAL PAIN
     Route: 042
     Dates: start: 20091124
  3. METFORMIN HCL [Concomitant]
     Indication: DIABETES MELLITUS
  4. COREG [Concomitant]
     Indication: PRODUCT USED FOR UNKNOWN INDICATION
  5. DIOVAN [Concomitant]
     Indication: PRODUCT USED FOR UNKNOWN INDICATION
  6. CELEBREX [Concomitant]
     Indication: PRODUCT USED FOR UNKNOWN INDICATION
  7. TEGRETOL [Concomitant]
     Indication: CONVULSION
  8. NEXIUM [Concomitant]
     Indication: GASTROOESOPHAGEAL REFLUX DISEASE
  9. ASPIRIN [Concomitant]
     Indication: PRODUCT USED FOR UNKNOWN INDICATION
  10. IV PAIN MEDICATION [Concomitant]
     Indication: FLANK PAIN
     Route: 042
     Dates: start: 20091220

REACTIONS (23)
  - AMNESIA [None]
  - AORTIC ANEURYSM [None]
  - ASTHENIA [None]
  - ATRIAL FIBRILLATION [None]
  - BODY HEIGHT DECREASED [None]
  - BONE DENSITY ABNORMAL [None]
  - CONFUSIONAL STATE [None]
  - FATIGUE [None]
  - FLANK PAIN [None]
  - FLUSHING [None]
  - HAEMOTHORAX [None]
  - HEART VALVE REPLACEMENT [None]
  - HYPERHIDROSIS [None]
  - LOSS OF CONSCIOUSNESS [None]
  - MARFAN'S SYNDROME [None]
  - OSTEOPOROSIS [None]
  - PRURITUS [None]
  - RASH [None]
  - SCOLIOSIS [None]
  - SPLENIC ARTERY ANEURYSM [None]
  - SUPRAVENTRICULAR EXTRASYSTOLES [None]
  - SYNCOPE [None]
  - VITAMIN D DEFICIENCY [None]
